FAERS Safety Report 18985821 (Version 1)
Quarter: 2021Q1

REPORT INFORMATION
  Report Type: Report from Study
  Country: US (occurrence: US)
  Receive Date: 20210309
  Receipt Date: 20210309
  Transmission Date: 20210420
  Serious: Yes (Hospitalization)
  Sender: FDA-Public Use
  Company Number: NVSC2021US047133

PATIENT
  Age: 52 Year
  Sex: Female

DRUGS (1)
  1. ENTRESTO [Suspect]
     Active Substance: SACUBITRIL\VALSARTAN
     Indication: PRODUCT USED FOR UNKNOWN INDICATION
     Dosage: UNK UNK, BID
     Route: 048

REACTIONS (8)
  - Feeling abnormal [Unknown]
  - Throat clearing [Unknown]
  - Drug ineffective [Unknown]
  - Cough [Unknown]
  - Decreased activity [Unknown]
  - Cardiac failure congestive [Unknown]
  - Cardiac sarcoidosis [Unknown]
  - Dyspnoea [Unknown]
